FAERS Safety Report 24468486 (Version 2)
Quarter: 2024Q4

REPORT INFORMATION
  Report Type: Spontaneous
  Country: US (occurrence: US)
  Receive Date: 20241018
  Receipt Date: 20241022
  Transmission Date: 20250115
  Serious: No
  Sender: PFIZER
  Company Number: US-BRISTOL-MYERS SQUIBB COMPANY-2024-162511

PATIENT
  Age: 67 Year
  Sex: Female

DRUGS (2)
  1. TUKYSA [Interacting]
     Active Substance: TUCATINIB
     Dosage: 50 MG, 6 TABLET TWICE A DAY
  2. ELIQUIS [Interacting]
     Active Substance: APIXABAN
     Dosage: 2.5 MG, 1X/DAY

REACTIONS (2)
  - Drug interaction [Unknown]
  - Off label use [Unknown]
